FAERS Safety Report 7159890 (Version 8)
Quarter: 2013Q4

REPORT INFORMATION
  Report Type: Spontaneous
  Country: US (occurrence: US)
  Receive Date: 20091027
  Receipt Date: 20131101
  Transmission Date: 20140711
  Serious: Yes (Death, Hospitalization, Other)
  Sender: FDA-Public Use
  Company Number: US-BIOGENIDEC-2009BI032944

PATIENT
  Age: 52 Year
  Sex: Female

DRUGS (52)
  1. TYSABRI [Suspect]
     Indication: MULTIPLE SCLEROSIS
     Route: 042
     Dates: start: 2005, end: 2005
  2. TYSABRI [Suspect]
     Indication: MULTIPLE SCLEROSIS
     Route: 042
     Dates: start: 20061103, end: 20090908
  3. BENADRYL [Concomitant]
     Indication: PREMEDICATION
     Dates: start: 2006
  4. BENADRYL [Concomitant]
     Indication: PREMEDICATION
     Route: 048
     Dates: start: 2007
  5. PREVACID [Concomitant]
  6. DIAZEPAM [Concomitant]
     Indication: ANXIETY
  7. MIRAPEX [Concomitant]
     Indication: RESTLESS LEGS SYNDROME
  8. MIRALAX [Concomitant]
  9. SERAX [Concomitant]
  10. FLOMAX [Concomitant]
     Indication: NEUROGENIC BLADDER
     Route: 048
  11. MAXALT-MLT [Concomitant]
     Indication: MIGRAINE
     Route: 048
  12. KLONOPIN [Concomitant]
     Indication: MUSCLE SPASTICITY
     Route: 048
  13. OXYCONTIN [Concomitant]
     Indication: FIBROMYALGIA
     Route: 048
  14. OXYCONTIN [Concomitant]
     Indication: FIBROMYALGIA
  15. OXYCONTIN [Concomitant]
     Indication: FIBROMYALGIA
     Route: 048
  16. WELLBUTRIN XL [Concomitant]
     Indication: DEPRESSION
     Route: 048
  17. WELLBUTRIN XL [Concomitant]
     Indication: DEPRESSION
     Route: 048
  18. CYMBALTA [Concomitant]
     Indication: DEPRESSION
     Route: 048
  19. CYMBALTA [Concomitant]
     Indication: DEPRESSION
     Route: 048
  20. CYMBALTA [Concomitant]
     Indication: DEPRESSION
     Route: 048
  21. BACLOFEN [Concomitant]
     Indication: MUSCLE SPASTICITY
     Route: 048
  22. TIZANIDINE [Concomitant]
     Indication: MUSCLE SPASTICITY
     Route: 048
  23. COMPAZINE [Concomitant]
  24. GEODON [Concomitant]
     Dates: start: 2008
  25. GEODON [Concomitant]
  26. LEVSIN [Concomitant]
  27. AMBIEN CR [Concomitant]
     Indication: SLEEP DISORDER
  28. VICODIN [Concomitant]
     Indication: PAIN
  29. VICODIN [Concomitant]
     Indication: PAIN
  30. IVIG [Concomitant]
     Indication: MULTIPLE SCLEROSIS
     Dates: start: 20070112
  31. REQUIP [Concomitant]
     Indication: RESTLESS LEGS SYNDROME
     Route: 048
     Dates: start: 200702
  32. TYLENOL [Concomitant]
     Indication: PREMEDICATION
  33. RHINOCORT AQUA [Concomitant]
     Dates: start: 2007
  34. ZANTAC [Concomitant]
     Dates: start: 2007
  35. ADVIL [Concomitant]
     Route: 048
     Dates: start: 20070309
  36. ZYRTEC [Concomitant]
     Route: 048
     Dates: start: 200703
  37. MACROBID [Concomitant]
     Route: 048
     Dates: start: 200703
  38. DEMEROL [Concomitant]
     Dates: start: 2007
  39. ROBAXIN [Concomitant]
     Dates: start: 2007
  40. LORAZEPAM [Concomitant]
     Dates: start: 2007
  41. PYRIDIUM [Concomitant]
     Dates: start: 200711
  42. HEPARIN [Concomitant]
     Indication: CYSTITIS INTERSTITIAL
  43. FENTANYL [Concomitant]
     Indication: PAIN
     Dates: start: 2008
  44. OXYCODONE [Concomitant]
     Indication: PAIN
     Dates: start: 2008
  45. PAXIL [Concomitant]
     Dates: start: 2008
  46. DETROL [Concomitant]
     Dates: start: 200803
  47. MARINOL [Concomitant]
     Indication: MULTIPLE SCLEROSIS
     Route: 048
     Dates: start: 2008
  48. DURAGESIC [Concomitant]
     Indication: PAIN
     Dates: start: 2008
  49. NORCO [Concomitant]
     Indication: PAIN
     Dates: start: 2008
  50. COLACE [Concomitant]
     Route: 048
     Dates: start: 200810
  51. NAPROXEN [Concomitant]
     Route: 048
     Dates: start: 200812
  52. TRAZODONE [Concomitant]
     Indication: SLEEP DISORDER
     Route: 048
     Dates: start: 200804

REACTIONS (8)
  - Respiratory failure [Fatal]
  - Pneumonia aspiration [Unknown]
  - Pneumonia staphylococcal [Unknown]
  - Progressive multifocal leukoencephalopathy [Unknown]
  - Fall [Recovered/Resolved]
  - Bladder dysfunction [Unknown]
  - Multiple sclerosis relapse [Unknown]
  - Urinary tract infection [Unknown]
